FAERS Safety Report 26118319 (Version 1)
Quarter: 2025Q4

REPORT INFORMATION
  Report Type: Spontaneous
  Country: EU (occurrence: EU)
  Receive Date: 20251203
  Receipt Date: 20251203
  Transmission Date: 20260117
  Serious: Yes (Hospitalization, Other)
  Sender: BAUSCH AND LOMB
  Company Number: EU-BAXTER-2025BAX024153

PATIENT
  Sex: Male

DRUGS (132)
  1. FAMOTIDINE [Suspect]
     Active Substance: FAMOTIDINE
     Indication: Parenteral nutrition
     Dosage: 5.4 ML
     Route: 065
  2. FAMOTIDINE [Suspect]
     Active Substance: FAMOTIDINE
     Dosage: 5.4 ML
     Route: 065
  3. FAMOTIDINE [Suspect]
     Active Substance: FAMOTIDINE
     Dosage: 5.4 ML
     Route: 065
  4. FAMOTIDINE [Suspect]
     Active Substance: FAMOTIDINE
     Dosage: 5.4 ML
     Route: 065
  5. FAMOTIDINE [Suspect]
     Active Substance: FAMOTIDINE
     Dosage: 5.4 ML
     Route: 065
  6. FAMOTIDINE [Suspect]
     Active Substance: FAMOTIDINE
     Dosage: 5.4 ML
     Route: 065
  7. FAMOTIDINE [Suspect]
     Active Substance: FAMOTIDINE
     Dosage: 5.4 ML
     Route: 065
  8. FAMOTIDINE [Suspect]
     Active Substance: FAMOTIDINE
     Dosage: 5.4 ML
     Route: 065
  9. FAMOTIDINE [Suspect]
     Active Substance: FAMOTIDINE
     Dosage: 5.4 ML
     Route: 065
  10. WATER FOR INJECTION [Suspect]
     Active Substance: WATER
     Indication: Parenteral nutrition
     Dosage: 180 ML
     Route: 065
  11. WATER FOR INJECTION [Suspect]
     Active Substance: WATER
     Dosage: 180 ML
     Route: 065
  12. WATER FOR INJECTION [Suspect]
     Active Substance: WATER
     Dosage: 180 ML
     Route: 065
  13. WATER FOR INJECTION [Suspect]
     Active Substance: WATER
     Dosage: 180 ML
     Route: 065
  14. WATER FOR INJECTION [Suspect]
     Active Substance: WATER
     Dosage: 180 ML
     Route: 065
  15. WATER FOR INJECTION [Suspect]
     Active Substance: WATER
     Dosage: 180 ML
     Route: 065
  16. WATER FOR INJECTION [Suspect]
     Active Substance: WATER
     Dosage: 180 ML
     Route: 065
  17. WATER FOR INJECTION [Suspect]
     Active Substance: WATER
     Dosage: 180 ML
     Route: 065
  18. WATER FOR INJECTION [Suspect]
     Active Substance: WATER
     Dosage: 180 ML
     Route: 065
  19. AMINO ACIDS, SOURCE UNSPECIFIED [Suspect]
     Active Substance: AMINO ACIDS, SOURCE UNSPECIFIED
     Indication: Parenteral nutrition
     Dosage: 252 ML
     Route: 065
  20. AMINO ACIDS, SOURCE UNSPECIFIED [Suspect]
     Active Substance: AMINO ACIDS, SOURCE UNSPECIFIED
     Dosage: 252 ML
     Route: 065
  21. AMINO ACIDS, SOURCE UNSPECIFIED [Suspect]
     Active Substance: AMINO ACIDS, SOURCE UNSPECIFIED
     Dosage: 252 ML
     Route: 065
  22. AMINO ACIDS, SOURCE UNSPECIFIED [Suspect]
     Active Substance: AMINO ACIDS, SOURCE UNSPECIFIED
     Dosage: 252 ML
     Route: 065
  23. AMINO ACIDS, SOURCE UNSPECIFIED [Suspect]
     Active Substance: AMINO ACIDS, SOURCE UNSPECIFIED
     Dosage: 252 ML
     Route: 065
  24. AMINO ACIDS, SOURCE UNSPECIFIED [Suspect]
     Active Substance: AMINO ACIDS, SOURCE UNSPECIFIED
     Dosage: 252 ML
     Route: 065
  25. AMINO ACIDS, SOURCE UNSPECIFIED [Suspect]
     Active Substance: AMINO ACIDS, SOURCE UNSPECIFIED
     Dosage: 252 ML
     Route: 065
  26. AMINO ACIDS, SOURCE UNSPECIFIED [Suspect]
     Active Substance: AMINO ACIDS, SOURCE UNSPECIFIED
     Dosage: 252 ML
     Route: 065
  27. AMINO ACIDS, SOURCE UNSPECIFIED [Suspect]
     Active Substance: AMINO ACIDS, SOURCE UNSPECIFIED
     Dosage: 252 ML
     Route: 065
  28. OLIVE OIL\SOYBEAN OIL [Suspect]
     Active Substance: OLIVE OIL\SOYBEAN OIL
     Indication: Parenteral nutrition
     Dosage: 172 ML
     Route: 065
  29. OLIVE OIL\SOYBEAN OIL [Suspect]
     Active Substance: OLIVE OIL\SOYBEAN OIL
     Dosage: 172 ML
     Route: 065
  30. OLIVE OIL\SOYBEAN OIL [Suspect]
     Active Substance: OLIVE OIL\SOYBEAN OIL
     Dosage: 172 ML
     Route: 065
  31. OLIVE OIL\SOYBEAN OIL [Suspect]
     Active Substance: OLIVE OIL\SOYBEAN OIL
     Dosage: 172 ML
     Route: 065
  32. OLIVE OIL\SOYBEAN OIL [Suspect]
     Active Substance: OLIVE OIL\SOYBEAN OIL
     Dosage: 172 ML
     Route: 065
  33. OLIVE OIL\SOYBEAN OIL [Suspect]
     Active Substance: OLIVE OIL\SOYBEAN OIL
     Dosage: 172 ML
     Route: 065
  34. OLIVE OIL\SOYBEAN OIL [Suspect]
     Active Substance: OLIVE OIL\SOYBEAN OIL
     Dosage: 172 ML
     Route: 065
  35. OLIVE OIL\SOYBEAN OIL [Suspect]
     Active Substance: OLIVE OIL\SOYBEAN OIL
     Dosage: 172 ML
     Route: 065
  36. OLIVE OIL\SOYBEAN OIL [Suspect]
     Active Substance: OLIVE OIL\SOYBEAN OIL
     Dosage: 172 ML
     Route: 065
  37. CERNEVIT [Suspect]
     Active Substance: VITAMINS
     Indication: Parenteral nutrition
     Dosage: 7.6 ML
     Route: 065
  38. CERNEVIT [Suspect]
     Active Substance: VITAMINS
     Dosage: 7.6 ML
     Route: 065
  39. CERNEVIT [Suspect]
     Active Substance: VITAMINS
     Dosage: 7.6 ML
     Route: 065
  40. CERNEVIT [Suspect]
     Active Substance: VITAMINS
     Dosage: 7.6 ML
     Route: 065
  41. CERNEVIT [Suspect]
     Active Substance: VITAMINS
     Dosage: 7.6 ML
     Route: 065
  42. CERNEVIT [Suspect]
     Active Substance: VITAMINS
     Dosage: 7.6 ML
     Route: 065
  43. CERNEVIT [Suspect]
     Active Substance: VITAMINS
     Dosage: 7.6 ML
     Route: 065
  44. CERNEVIT [Suspect]
     Active Substance: VITAMINS
     Dosage: 7.6 ML
     Route: 065
  45. CERNEVIT [Suspect]
     Active Substance: VITAMINS
     Dosage: 7.6 ML
     Route: 065
  46. DEXTROSE [Suspect]
     Active Substance: DEXTROSE MONOHYDRATE
     Indication: Parenteral nutrition
     Dosage: 323 ML
     Route: 065
  47. DEXTROSE [Suspect]
     Active Substance: DEXTROSE MONOHYDRATE
     Dosage: 323 ML
     Route: 065
  48. DEXTROSE [Suspect]
     Active Substance: DEXTROSE MONOHYDRATE
     Dosage: 323 ML
     Route: 065
  49. DEXTROSE [Suspect]
     Active Substance: DEXTROSE MONOHYDRATE
     Dosage: 323 ML
     Route: 065
  50. DEXTROSE [Suspect]
     Active Substance: DEXTROSE MONOHYDRATE
     Dosage: 323 ML
     Route: 065
  51. DEXTROSE [Suspect]
     Active Substance: DEXTROSE MONOHYDRATE
     Dosage: 323 ML
     Route: 065
  52. DEXTROSE [Suspect]
     Active Substance: DEXTROSE MONOHYDRATE
     Dosage: 323 ML
     Route: 065
  53. DEXTROSE [Suspect]
     Active Substance: DEXTROSE MONOHYDRATE
     Dosage: 323 ML
     Route: 065
  54. DEXTROSE [Suspect]
     Active Substance: DEXTROSE MONOHYDRATE
     Dosage: 323 ML
     Route: 065
  55. DEXTROSE [Suspect]
     Active Substance: DEXTROSE MONOHYDRATE
     Dosage: 323 ML
     Route: 065
  56. DEXTROSE [Suspect]
     Active Substance: DEXTROSE MONOHYDRATE
     Dosage: 323 ML
     Route: 065
  57. DEXTROSE [Suspect]
     Active Substance: DEXTROSE MONOHYDRATE
     Dosage: 323 ML
     Route: 065
  58. DEXTROSE [Suspect]
     Active Substance: DEXTROSE MONOHYDRATE
     Dosage: 323 ML
     Route: 065
  59. DEXTROSE [Suspect]
     Active Substance: DEXTROSE MONOHYDRATE
     Dosage: 323 ML
     Route: 065
  60. CALCIUM GLUCONATE [Suspect]
     Active Substance: CALCIUM GLUCONATE
     Indication: Parenteral nutrition
     Dosage: 92 ML
     Route: 065
  61. CALCIUM GLUCONATE [Suspect]
     Active Substance: CALCIUM GLUCONATE
     Dosage: 92 ML
     Route: 065
  62. CALCIUM GLUCONATE [Suspect]
     Active Substance: CALCIUM GLUCONATE
     Dosage: 92 ML
     Route: 065
  63. CALCIUM GLUCONATE [Suspect]
     Active Substance: CALCIUM GLUCONATE
     Dosage: 92 ML
     Route: 065
  64. CALCIUM GLUCONATE [Suspect]
     Active Substance: CALCIUM GLUCONATE
     Dosage: 92 ML
     Route: 065
  65. CALCIUM GLUCONATE [Suspect]
     Active Substance: CALCIUM GLUCONATE
     Dosage: 92 ML
     Route: 065
  66. CALCIUM GLUCONATE [Suspect]
     Active Substance: CALCIUM GLUCONATE
     Dosage: 92 ML
     Route: 065
  67. CALCIUM GLUCONATE [Suspect]
     Active Substance: CALCIUM GLUCONATE
     Dosage: 92 ML
     Route: 065
  68. CALCIUM GLUCONATE [Suspect]
     Active Substance: CALCIUM GLUCONATE
     Dosage: 92 ML
     Route: 065
  69. MAGNESIUM SULFATE [Suspect]
     Active Substance: MAGNESIUM SULFATE
     Indication: Parenteral nutrition
     Dosage: 3.2 ML
     Route: 065
  70. MAGNESIUM SULFATE [Suspect]
     Active Substance: MAGNESIUM SULFATE
     Dosage: 3.2 ML
     Route: 065
  71. MAGNESIUM SULFATE [Suspect]
     Active Substance: MAGNESIUM SULFATE
     Dosage: 3.2 ML
     Route: 065
  72. MAGNESIUM SULFATE [Suspect]
     Active Substance: MAGNESIUM SULFATE
     Dosage: 3.2 ML
     Route: 065
  73. MAGNESIUM SULFATE [Suspect]
     Active Substance: MAGNESIUM SULFATE
     Dosage: 3.2 ML
     Route: 065
  74. MAGNESIUM SULFATE [Suspect]
     Active Substance: MAGNESIUM SULFATE
     Dosage: 3.2 ML
     Route: 065
  75. MAGNESIUM SULFATE [Suspect]
     Active Substance: MAGNESIUM SULFATE
     Dosage: 3.2 ML
     Route: 065
  76. MAGNESIUM SULFATE [Suspect]
     Active Substance: MAGNESIUM SULFATE
     Dosage: 3.2 ML
     Route: 065
  77. MAGNESIUM SULFATE [Suspect]
     Active Substance: MAGNESIUM SULFATE
     Dosage: 3.2 ML
     Route: 065
  78. KCL [Suspect]
     Active Substance: POTASSIUM CHLORIDE
     Indication: Parenteral nutrition
     Dosage: 116 ML
     Route: 065
  79. KCL [Suspect]
     Active Substance: POTASSIUM CHLORIDE
     Dosage: 116 ML
     Route: 065
  80. KCL [Suspect]
     Active Substance: POTASSIUM CHLORIDE
     Dosage: 116 ML
     Route: 065
  81. KCL [Suspect]
     Active Substance: POTASSIUM CHLORIDE
     Dosage: 116 ML
     Route: 065
  82. KCL [Suspect]
     Active Substance: POTASSIUM CHLORIDE
     Dosage: 116 ML
     Route: 065
  83. KCL [Suspect]
     Active Substance: POTASSIUM CHLORIDE
     Dosage: 116 ML
     Route: 065
  84. KCL [Suspect]
     Active Substance: POTASSIUM CHLORIDE
     Dosage: 116 ML
     Route: 065
  85. KCL [Suspect]
     Active Substance: POTASSIUM CHLORIDE
     Dosage: 116 ML
     Route: 065
  86. KCL [Suspect]
     Active Substance: POTASSIUM CHLORIDE
     Dosage: 116 ML
     Route: 065
  87. SODIUM CHLORIDE [Suspect]
     Active Substance: SODIUM CHLORIDE
     Indication: Parenteral nutrition
     Dosage: 11 ML
     Route: 065
  88. SODIUM CHLORIDE [Suspect]
     Active Substance: SODIUM CHLORIDE
     Dosage: 11 ML
     Route: 065
  89. SODIUM CHLORIDE [Suspect]
     Active Substance: SODIUM CHLORIDE
     Dosage: 11 ML
     Route: 065
  90. SODIUM CHLORIDE [Suspect]
     Active Substance: SODIUM CHLORIDE
     Dosage: 11 ML
     Route: 065
  91. SODIUM CHLORIDE [Suspect]
     Active Substance: SODIUM CHLORIDE
     Dosage: 11 ML
     Route: 065
  92. SODIUM CHLORIDE [Suspect]
     Active Substance: SODIUM CHLORIDE
     Dosage: 11 ML
     Route: 065
  93. SODIUM CHLORIDE [Suspect]
     Active Substance: SODIUM CHLORIDE
     Dosage: 11 ML
     Route: 065
  94. SODIUM CHLORIDE [Suspect]
     Active Substance: SODIUM CHLORIDE
     Dosage: 11 ML
     Route: 065
  95. SODIUM CHLORIDE [Suspect]
     Active Substance: SODIUM CHLORIDE
     Dosage: 11 ML
     Route: 065
  96. PHOCYTAN [Suspect]
     Active Substance: .ALPHA.-GLUCOSE-1-PHOSPHATE DISODIUM TETRAHYDRATE
     Indication: Parenteral nutrition
     Dosage: 98 ML
     Route: 065
  97. PHOCYTAN [Suspect]
     Active Substance: .ALPHA.-GLUCOSE-1-PHOSPHATE DISODIUM TETRAHYDRATE
     Dosage: 98 ML
     Route: 065
  98. PHOCYTAN [Suspect]
     Active Substance: .ALPHA.-GLUCOSE-1-PHOSPHATE DISODIUM TETRAHYDRATE
     Dosage: 98 ML
     Route: 065
  99. PHOCYTAN [Suspect]
     Active Substance: .ALPHA.-GLUCOSE-1-PHOSPHATE DISODIUM TETRAHYDRATE
     Dosage: 98 ML
     Route: 065
  100. PHOCYTAN [Suspect]
     Active Substance: .ALPHA.-GLUCOSE-1-PHOSPHATE DISODIUM TETRAHYDRATE
     Dosage: 98 ML
     Route: 065
  101. PHOCYTAN [Suspect]
     Active Substance: .ALPHA.-GLUCOSE-1-PHOSPHATE DISODIUM TETRAHYDRATE
     Dosage: 98 ML
     Route: 065
  102. PHOCYTAN [Suspect]
     Active Substance: .ALPHA.-GLUCOSE-1-PHOSPHATE DISODIUM TETRAHYDRATE
     Dosage: 98 ML
     Route: 065
  103. PHOCYTAN [Suspect]
     Active Substance: .ALPHA.-GLUCOSE-1-PHOSPHATE DISODIUM TETRAHYDRATE
     Dosage: 98 ML
     Route: 065
  104. PHOCYTAN [Suspect]
     Active Substance: .ALPHA.-GLUCOSE-1-PHOSPHATE DISODIUM TETRAHYDRATE
     Dosage: 98 ML
     Route: 065
  105. UNSPECIFIED INGREDIENT [Suspect]
     Active Substance: UNSPECIFIED INGREDIENT
     Indication: Parenteral nutrition
     Dosage: 11 ML
     Route: 065
  106. UNSPECIFIED INGREDIENT [Suspect]
     Active Substance: UNSPECIFIED INGREDIENT
     Dosage: 11 ML
     Route: 065
  107. UNSPECIFIED INGREDIENT [Suspect]
     Active Substance: UNSPECIFIED INGREDIENT
     Dosage: 11 ML
     Route: 065
  108. UNSPECIFIED INGREDIENT [Suspect]
     Active Substance: UNSPECIFIED INGREDIENT
     Dosage: 11 ML
     Route: 065
  109. UNSPECIFIED INGREDIENT [Suspect]
     Active Substance: UNSPECIFIED INGREDIENT
     Dosage: 11 ML
     Route: 065
  110. UNSPECIFIED INGREDIENT [Suspect]
     Active Substance: UNSPECIFIED INGREDIENT
     Dosage: 11 ML
     Route: 065
  111. UNSPECIFIED INGREDIENT [Suspect]
     Active Substance: UNSPECIFIED INGREDIENT
     Dosage: 11 ML
     Route: 065
  112. UNSPECIFIED INGREDIENT [Suspect]
     Active Substance: UNSPECIFIED INGREDIENT
     Dosage: 11 ML
     Route: 065
  113. UNSPECIFIED INGREDIENT [Suspect]
     Active Substance: UNSPECIFIED INGREDIENT
     Dosage: 11 ML
     Route: 065
  114. IRON\MINERALS\POTASSIUM IOD\SODIUM FLUORIDE\SODIUM MOLYBDATE\SODIUM SE [Suspect]
     Active Substance: IRON\MINERALS\POTASSIUM IOD\SODIUM FLUORIDE\SODIUM MOLYBDATE\SODIUM SELENITE\ZINC
     Indication: Parenteral nutrition
     Dosage: 11 ML
     Route: 065
  115. IRON\MINERALS\POTASSIUM IOD\SODIUM FLUORIDE\SODIUM MOLYBDATE\SODIUM SE [Suspect]
     Active Substance: IRON\MINERALS\POTASSIUM IOD\SODIUM FLUORIDE\SODIUM MOLYBDATE\SODIUM SELENITE\ZINC
     Dosage: 11 ML
     Route: 065
  116. IRON\MINERALS\POTASSIUM IOD\SODIUM FLUORIDE\SODIUM MOLYBDATE\SODIUM SE [Suspect]
     Active Substance: IRON\MINERALS\POTASSIUM IOD\SODIUM FLUORIDE\SODIUM MOLYBDATE\SODIUM SELENITE\ZINC
     Dosage: 11 ML
     Route: 065
  117. IRON\MINERALS\POTASSIUM IOD\SODIUM FLUORIDE\SODIUM MOLYBDATE\SODIUM SE [Suspect]
     Active Substance: IRON\MINERALS\POTASSIUM IOD\SODIUM FLUORIDE\SODIUM MOLYBDATE\SODIUM SELENITE\ZINC
     Dosage: 11 ML
     Route: 065
  118. OMEGAVEN [Suspect]
     Active Substance: FISH OIL
     Indication: Parenteral nutrition
     Dosage: 129 ML
     Route: 065
  119. OMEGAVEN [Suspect]
     Active Substance: FISH OIL
     Dosage: 129 ML
     Route: 065
  120. OMEGAVEN [Suspect]
     Active Substance: FISH OIL
     Dosage: 129 ML
     Route: 065
  121. OMEGAVEN [Suspect]
     Active Substance: FISH OIL
     Dosage: 129 ML
     Route: 065
  122. OMEGAVEN [Suspect]
     Active Substance: FISH OIL
     Dosage: 129 ML
     Route: 065
  123. OMEGAVEN [Suspect]
     Active Substance: FISH OIL
     Dosage: 129 ML
     Route: 065
  124. OMEGAVEN [Suspect]
     Active Substance: FISH OIL
     Dosage: 129 ML
     Route: 065
  125. OMEGAVEN [Suspect]
     Active Substance: FISH OIL
     Dosage: 129 ML
     Route: 065
  126. OMEGAVEN [Suspect]
     Active Substance: FISH OIL
     Dosage: 129 ML
     Route: 065
  127. OMEGAVEN [Suspect]
     Active Substance: FISH OIL
     Dosage: 129 ML
     Route: 065
  128. OMEGAVEN [Suspect]
     Active Substance: FISH OIL
     Dosage: 129 ML
     Route: 065
  129. OMEGAVEN [Suspect]
     Active Substance: FISH OIL
     Dosage: 129 ML
     Route: 065
  130. OMEGAVEN [Suspect]
     Active Substance: FISH OIL
     Dosage: 129 ML
     Route: 065
  131. VITAMIN K [Suspect]
     Active Substance: PHYTONADIONE
     Indication: Parenteral nutrition
     Dosage: 1.1 ML
     Route: 065
  132. VITAMIN K [Suspect]
     Active Substance: PHYTONADIONE
     Dosage: 1.1 ML
     Route: 065

REACTIONS (1)
  - Sepsis [Unknown]
